FAERS Safety Report 4382349-4 (Version None)
Quarter: 2004Q2

REPORT INFORMATION
  Report Type: 
  Country: None (occurrence: None)
  Receive Date: 20040622
  Receipt Date: 20040611
  Transmission Date: 20050107
  Serious: Yes (Hospitalization)
  Sender: FDA-Public Use
  Company Number: PHEH2004US06491

PATIENT
  Age: 79 Year
  Sex: Male
  Weight: 100 kg

DRUGS (7)
  1. ZOMETA [Suspect]
     Indication: PROSTATE CANCER
     Dosage: 4 MG, QMO
     Route: 042
     Dates: start: 20020326
  2. CLINDAMYCIN [Concomitant]
  3. TAXOTERE [Concomitant]
  4. EMCYT [Concomitant]
  5. WARFARIN SODIUM [Concomitant]
  6. HYZAAR [Concomitant]
  7. TOPROL-XL [Concomitant]

REACTIONS (4)
  - GINGIVAL ABSCESS [None]
  - INFECTION [None]
  - JAW DISORDER [None]
  - MOUTH ULCERATION [None]
